FAERS Safety Report 10286048 (Version 3)
Quarter: 2014Q4

REPORT INFORMATION
  Report Type: Spontaneous
  Country: US (occurrence: None)
  Receive Date: 20140703
  Receipt Date: 20141016
  Transmission Date: 20150528
  Serious: Yes (Life-Threatening, Hospitalization, Other)
  Sender: FDA-Public Use
  Company Number: ADR-2014-01157

PATIENT
  Age: 24 Year
  Sex: Male

DRUGS (2)
  1. LIORESAL [Suspect]
     Active Substance: BACLOFEN
     Indication: MUSCLE SPASTICITY
  2. GABLOFEN [Suspect]
     Active Substance: BACLOFEN
     Dosage: 1,514.4 MCG/DAY

REACTIONS (5)
  - Respiratory depression [None]
  - Drug effect variable [None]
  - Therapy change [None]
  - Depressed level of consciousness [None]
  - PCO2 increased [None]

NARRATIVE: CASE EVENT DATE: 20140616
